FAERS Safety Report 21526919 (Version 4)
Quarter: 2024Q2

REPORT INFORMATION
  Report Type: Report from Study
  Country: US (occurrence: US)
  Receive Date: 20221031
  Receipt Date: 20240410
  Transmission Date: 20240716
  Serious: No
  Sender: FDA-Public Use
  Company Number: US-ABBVIE-4131436

PATIENT
  Sex: Female

DRUGS (2)
  1. RINVOQ [Suspect]
     Active Substance: UPADACITINIB
     Indication: Rheumatoid arthritis
     Dosage: FORM STRENGTH 15 MILLIGRAMS. ER
     Route: 048
     Dates: start: 20220515
  2. CANNABIDIOL [Concomitant]
     Active Substance: CANNABIDIOL
     Indication: Product used for unknown indication

REACTIONS (23)
  - Vision blurred [Unknown]
  - Arthralgia [Recovering/Resolving]
  - Diarrhoea [Unknown]
  - Weight bearing difficulty [Recovering/Resolving]
  - Cough [Unknown]
  - Dyspnoea [Unknown]
  - Dizziness [Unknown]
  - Muscle twitching [Recovered/Resolved]
  - Upper respiratory tract infection [Recovered/Resolved]
  - Pain [Recovering/Resolving]
  - Muscle spasms [Not Recovered/Not Resolved]
  - Depression [Unknown]
  - Paraesthesia [Unknown]
  - Swelling [Recovering/Resolving]
  - Headache [Unknown]
  - Blood pressure increased [Unknown]
  - Nausea [Unknown]
  - Conjunctivitis [Unknown]
  - Joint stiffness [Unknown]
  - Asthenopia [Unknown]
  - Hypoaesthesia [Unknown]
  - Drug ineffective [Recovering/Resolving]
  - Pain in extremity [Recovering/Resolving]

NARRATIVE: CASE EVENT DATE: 20220101
